FAERS Safety Report 9768180 (Version 3)
Quarter: 2014Q1

REPORT INFORMATION
  Report Type: Spontaneous
  Country: DE (occurrence: DE)
  Receive Date: 20131217
  Receipt Date: 20140204
  Transmission Date: 20141002
  Serious: Yes (Death, Other)
  Sender: FDA-Public Use
  Company Number: PHHY2013DE146496

PATIENT
  Sex: 0

DRUGS (2)
  1. CICLOSPORIN [Suspect]
     Indication: PROPHYLAXIS AGAINST TRANSPLANT REJECTION
     Dosage: 150 MG, UNK
     Dates: start: 20121212, end: 20121224
  2. CICLOSPORIN [Suspect]
     Indication: STEM CELL TRANSPLANT

REACTIONS (5)
  - Acute respiratory failure [Fatal]
  - Atypical pneumonia [Fatal]
  - Septic shock [Fatal]
  - Microangiopathic haemolytic anaemia [Unknown]
  - Red blood cell schistocytes present [Unknown]
